FAERS Safety Report 14942157 (Version 1)
Quarter: 2018Q2

REPORT INFORMATION
  Report Type: Spontaneous
  Country: US (occurrence: US)
  Receive Date: 20180528
  Receipt Date: 20180528
  Transmission Date: 20180711
  Serious: No
  Sender: FDA-Public Use
  Company Number: US-USPHARMA LIMITED-2018-US-000012

PATIENT
  Age: 33 Year
  Sex: Male

DRUGS (6)
  1. NITROGLYCERIN. [Suspect]
     Active Substance: NITROGLYCERIN
     Indication: HYPOTHENAR HAMMER SYNDROME
     Dosage: 1000 MCG
     Route: 065
  2. IBUPROFEN. [Concomitant]
     Active Substance: IBUPROFEN
     Indication: PAIN
     Route: 065
  3. DILTIAZEM. [Concomitant]
     Active Substance: DILTIAZEM
     Indication: HYPOTHENAR HAMMER SYNDROME
     Route: 065
  4. RIVAROXABAN [Concomitant]
     Active Substance: RIVAROXABAN
     Indication: HYPOTHENAR HAMMER SYNDROME
     Route: 065
  5. HEPARIN [Concomitant]
     Active Substance: HEPARIN SODIUM
     Indication: HYPOTHENAR HAMMER SYNDROME
     Dosage: 1000 U
     Route: 065
  6. PAPAVERINE [Concomitant]
     Active Substance: PAPAVERINE
     Indication: HYPOTHENAR HAMMER SYNDROME
     Dosage: 60 MG
     Route: 065

REACTIONS (1)
  - Drug effective for unapproved indication [Unknown]
